FAERS Safety Report 10512991 (Version 1)
Quarter: 2014Q4

REPORT INFORMATION
  Report Type: Report from Study
  Country: US (occurrence: US)
  Receive Date: 20141013
  Receipt Date: 20141013
  Transmission Date: 20150528
  Serious: Yes (Hospitalization)
  Sender: FDA-Public Use
  Company Number: US-BIOGENIDEC-2014BI103664

PATIENT
  Age: 35 Year
  Sex: Female

DRUGS (1)
  1. TECFIDERA [Suspect]
     Active Substance: DIMETHYL FUMARATE
     Indication: MULTIPLE SCLEROSIS
     Dates: start: 20140501

REACTIONS (7)
  - Appendicectomy [Recovered/Resolved]
  - Bladder perforation [Recovered/Resolved]
  - Mental disorder [Recovered/Resolved]
  - Hysterectomy [Recovered/Resolved]
  - Abdominal pain [Recovered/Resolved]
  - Vaginal operation [Recovered/Resolved]
  - Chromaturia [Recovered/Resolved]

NARRATIVE: CASE EVENT DATE: 20140602
